FAERS Safety Report 24712086 (Version 1)
Quarter: 2024Q4

REPORT INFORMATION
  Report Type: Spontaneous
  Country: ZA (occurrence: ZA)
  Receive Date: 20241209
  Receipt Date: 20241209
  Transmission Date: 20250114
  Serious: Yes (Other)
  Sender: PFIZER
  Company Number: ZA-PFIZER INC-PV202400157559

PATIENT
  Age: 46 Year
  Sex: Female
  Weight: 74 kg

DRUGS (1)
  1. METHOTREXATE SODIUM [Suspect]
     Active Substance: METHOTREXATE SODIUM
     Indication: Rheumatoid arthritis
     Dosage: 15 MG, WEEKLY
     Dates: start: 202101, end: 202212

REACTIONS (2)
  - Gastrointestinal disorder [Unknown]
  - Therapeutic product effect incomplete [Unknown]
